FAERS Safety Report 10610739 (Version 2)
Quarter: 2015Q1

REPORT INFORMATION
  Report Type: Spontaneous
  Country: US (occurrence: US)
  Receive Date: 20141126
  Receipt Date: 20150126
  Transmission Date: 20150720
  Serious: Yes (Death)
  Sender: FDA-Public Use
  Company Number: US-MALLINCKRODT-T201404127

PATIENT
  Sex: Female

DRUGS (4)
  1. GABLOFEN [Suspect]
     Active Substance: BACLOFEN
     Indication: PAIN
     Dosage: UNK
     Route: 037
  2. MORPHINE [Suspect]
     Active Substance: MORPHINE
     Indication: PAIN
  3. GABLOFEN [Suspect]
     Active Substance: BACLOFEN
     Indication: PAIN
  4. MORPHINE [Suspect]
     Active Substance: MORPHINE
     Indication: PAIN
     Dosage: 10.0 MG/ML, 0.500 MG/DAY
     Route: 037

REACTIONS (2)
  - Product use issue [Unknown]
  - Cardiac failure congestive [Fatal]
